FAERS Safety Report 20331538 (Version 1)
Quarter: 2022Q1

REPORT INFORMATION
  Report Type: Spontaneous
  Country: US (occurrence: US)
  Receive Date: 20220113
  Receipt Date: 20220113
  Transmission Date: 20220423
  Serious: Yes (Hospitalization, Other)
  Sender: FDA-Public Use
  Company Number: US-LUOXINA-LUOX-PHC-2021-DEC-29-SPO-0006

PATIENT
  Sex: Female
  Weight: 2.60 kg

DRUGS (6)
  1. ALBUTEROL SULFATE [Suspect]
     Active Substance: ALBUTEROL SULFATE
     Indication: Asthma
     Route: 064
  2. RANITIDINE [Suspect]
     Active Substance: RANITIDINE
     Indication: Gastrointestinal disorder
     Route: 064
  3. SUMATRIPTAN [Suspect]
     Active Substance: SUMATRIPTAN
     Indication: Migraine
     Route: 064
  4. PLECANATIDE [Suspect]
     Active Substance: PLECANATIDE
     Indication: Constipation
     Route: 064
  5. FLUOXETINE HYDROCHLORIDE [Suspect]
     Active Substance: FLUOXETINE HYDROCHLORIDE
     Indication: Depression
     Route: 064
  6. BUPROPION HYDROCHLORIDE [Suspect]
     Active Substance: BUPROPION HYDROCHLORIDE
     Indication: Depression
     Route: 064

REACTIONS (3)
  - Seizure [Unknown]
  - Sepsis [Unknown]
  - Foetal exposure during pregnancy [Unknown]

NARRATIVE: CASE EVENT DATE: 20201203
